FAERS Safety Report 7470780-X (Version None)
Quarter: 2011Q2

REPORT INFORMATION
  Report Type: 
  Country: None (occurrence: None)
  Receive Date: 20110510
  Receipt Date: 20110509
  Transmission Date: 20111010
  Serious: Yes (Other)
  Sender: FDA-Public Use
  Company Number: US-PFIZER INC-2011099330

PATIENT
  Sex: Female
  Weight: 109 kg

DRUGS (13)
  1. ALLEGRA [Concomitant]
     Indication: HYPERSENSITIVITY
     Dosage: UNK
  2. LIPITOR [Suspect]
     Indication: BLOOD CHOLESTEROL ABNORMAL
     Dosage: 20 MG, 1X/DAY
     Route: 048
     Dates: start: 20110202
  3. KLOR-CON [Concomitant]
     Indication: HYPERTENSION
     Dosage: 220 MG, 2X/DAY
  4. XANAX [Concomitant]
     Indication: PANIC ATTACK
  5. SEROQUEL [Concomitant]
     Indication: PANIC ATTACK
     Dosage: UNK
  6. XANAX [Concomitant]
     Indication: HEPATIC NEOPLASM MALIGNANT
     Dosage: 0.5 MG, 2X/DAY
  7. DIOVAN [Concomitant]
     Indication: HYPERTENSION
     Dosage: UNK
  8. AMBIEN [Concomitant]
     Indication: SLEEP DISORDER
     Dosage: 10 MG, 1X/DAY
  9. SERRAPEPTASE [Concomitant]
     Indication: BONE DISORDER
     Dosage: UNK
  10. LASIX [Concomitant]
     Indication: DIURETIC THERAPY
     Dosage: 20 MG, UNK
  11. WARFARIN SODIUM [Concomitant]
     Indication: DEEP VEIN THROMBOSIS
     Dosage: 4 MG, 1X/DAY
  12. KLOR-CON [Concomitant]
     Indication: SWELLING
  13. OXYGEN [Concomitant]
     Dosage: UNK

REACTIONS (1)
  - BLOOD GLUCOSE INCREASED [None]
